FAERS Safety Report 15634685 (Version 7)
Quarter: 2019Q3

REPORT INFORMATION
  Report Type: Report from Study
  Country: US (occurrence: US)
  Receive Date: 20181119
  Receipt Date: 20190701
  Transmission Date: 20191004
  Serious: Yes (Death, Hospitalization, Other)
  Sender: FDA-Public Use
  Company Number: US-ACTELION-A-NJ2013-85443

PATIENT
  Age: 61 Year
  Sex: Female
  Weight: 50.79 kg

DRUGS (20)
  1. ADCIRCA [Concomitant]
     Active Substance: TADALAFIL
  2. CALCIUM CARBONATE. [Concomitant]
     Active Substance: CALCIUM CARBONATE
  3. VELETRI [Suspect]
     Active Substance: EPOPROSTENOL
     Indication: PULMONARY ARTERIAL HYPERTENSION
     Dosage: 91 NG/KG, PER MIN
     Route: 042
     Dates: start: 20110927
  4. ASCORBIC ACID. [Concomitant]
     Active Substance: ASCORBIC ACID
  5. SILDENAFIL. [Concomitant]
     Active Substance: SILDENAFIL
  6. NORVASC [Concomitant]
     Active Substance: AMLODIPINE BESYLATE
  7. IMODIUM [Concomitant]
     Active Substance: LOPERAMIDE HYDROCHLORIDE
  8. PROMETHAZINE [Concomitant]
     Active Substance: PROMETHAZINE HYDROCHLORIDE
  9. VELETRI [Suspect]
     Active Substance: EPOPROSTENOL
     Dosage: 77 NG/KG, PER MIN
     Route: 042
  10. VELETRI [Suspect]
     Active Substance: EPOPROSTENOL
     Dosage: 93 NG/KG, PER MINUTE
     Route: 042
  11. COUMADIN [Concomitant]
     Active Substance: WARFARIN SODIUM
  12. CLINDAMYCIN. [Concomitant]
     Active Substance: CLINDAMYCIN
  13. NEURONTIN [Concomitant]
     Active Substance: GABAPENTIN
  14. VELETRI [Suspect]
     Active Substance: EPOPROSTENOL
     Dosage: 73 NG/KG, PER MIN
     Route: 042
     Dates: start: 20110913
  15. AMLODIPINE [Concomitant]
     Active Substance: AMLODIPINE BESYLATE
  16. KLOR-CON [Concomitant]
     Active Substance: POTASSIUM CHLORIDE
  17. RANITIDINE. [Concomitant]
     Active Substance: RANITIDINE
  18. ERGOCALCIFEROL. [Concomitant]
     Active Substance: ERGOCALCIFEROL
  19. FLONASE [Concomitant]
     Active Substance: FLUTICASONE PROPIONATE
  20. LASIX [Concomitant]
     Active Substance: FUROSEMIDE

REACTIONS (26)
  - Death [Fatal]
  - Blood culture positive [Recovered/Resolved]
  - Fluid overload [Unknown]
  - Device related infection [Recovered/Resolved]
  - Catheter site infection [Recovered/Resolved]
  - Atrial fibrillation [Unknown]
  - Device occlusion [Unknown]
  - Device related sepsis [Unknown]
  - Hospitalisation [Unknown]
  - Dyspnoea exertional [Unknown]
  - Transplant evaluation [Unknown]
  - Chills [Recovered/Resolved]
  - Bacteraemia [Recovered/Resolved]
  - Catheter site haemorrhage [Unknown]
  - Oedema peripheral [Unknown]
  - White blood cell count increased [Recovered/Resolved]
  - Catheter management [Recovered/Resolved]
  - Fluid retention [Unknown]
  - Palpitations [Unknown]
  - Catheter site erythema [Recovered/Resolved]
  - Sepsis [Recovered/Resolved]
  - Pyrexia [Recovered/Resolved]
  - Hepatomegaly [Unknown]
  - Catheter site irritation [Recovered/Resolved]
  - Serratia test positive [Recovered/Resolved]
  - Diarrhoea [Unknown]

NARRATIVE: CASE EVENT DATE: 201709
